FAERS Safety Report 6237748-2 (Version None)
Quarter: 2009Q2

REPORT INFORMATION
  Report Type: 
  Country: None (occurrence: None)
  Receive Date: 20090618
  Receipt Date: 20090609
  Transmission Date: 20091009
  Serious: Yes (Other)
  Sender: FDA-Public Use
  Company Number: 09US001909

PATIENT
  Age: 27 Year
  Sex: Female
  Weight: 86.2 kg

DRUGS (1)
  1. IBUPROFEN [Suspect]
     Indication: INTENTIONAL OVERDOSE
     Dosage: 4200 MG, SINGLE, ORAL
     Route: 048
     Dates: start: 20090608, end: 20090608

REACTIONS (4)
  - DEPRESSION [None]
  - INCORRECT DOSE ADMINISTERED [None]
  - INTENTIONAL OVERDOSE [None]
  - MENTAL DISORDER [None]
